FAERS Safety Report 6582624-9 (Version None)
Quarter: 2010Q1

REPORT INFORMATION
  Report Type: 
  Country: None (occurrence: None)
  Receive Date: 20100203
  Receipt Date: 20100129
  Transmission Date: 20100710
  Serious: Yes (Death)
  Sender: FDA-Public Use
  Company Number: AE-110-032

PATIENT
  Age: 43 Year
  Sex: Female

DRUGS (1)
  1. LIDODERM [Suspect]

REACTIONS (1)
  - DEATH [None]
